FAERS Safety Report 7584280-X (Version None)
Quarter: 2011Q2

REPORT INFORMATION
  Report Type: 
  Country: None (occurrence: None)
  Receive Date: 20110531
  Receipt Date: 20100720
  Transmission Date: 20111010
  Serious: Yes (Other)
  Sender: FDA-Public Use
  Company Number: WAES 1001USA00742

PATIENT
  Age: 61 Year
  Sex: Female
  Weight: 69.8539 kg

DRUGS (1)
  1. JANUMET [Suspect]
     Indication: TYPE 2 DIABETES MELLITUS
     Dosage: 1000-50 MG/BID/PO
     Route: 048
     Dates: start: 20090601

REACTIONS (2)
  - BLOOD GLUCOSE ABNORMAL [None]
  - HEPATIC ENZYME INCREASED [None]
